FAERS Safety Report 15280714 (Version 1)
Quarter: 2018Q3

REPORT INFORMATION
  Report Type: Spontaneous
  Country: US (occurrence: US)
  Receive Date: 20180815
  Receipt Date: 20180815
  Transmission Date: 20181010
  Serious: Yes (Other)
  Sender: FDA-Public Use
  Company Number: PHEH2018US032675

PATIENT
  Sex: Female
  Weight: 11 kg

DRUGS (4)
  1. PREDNISONE TABLETS USP [Suspect]
     Active Substance: PREDNISONE
     Indication: LANGERHANS^ CELL HISTIOCYTOSIS
     Dosage: UNK
     Route: 065
     Dates: start: 20171201
  2. VEMURAFENIB. [Suspect]
     Active Substance: VEMURAFENIB
     Indication: LANGERHANS^ CELL HISTIOCYTOSIS
     Dosage: UNK
     Route: 065
     Dates: start: 20171226
  3. VINBLASTINE [Suspect]
     Active Substance: VINBLASTINE
     Indication: LANGERHANS^ CELL HISTIOCYTOSIS
     Dosage: UNK
     Route: 065
     Dates: start: 20171201
  4. CLOFARABINE. [Suspect]
     Active Substance: CLOFARABINE
     Indication: LANGERHANS^ CELL HISTIOCYTOSIS
     Dosage: UNK
     Route: 065
     Dates: start: 20180612

REACTIONS (15)
  - Respiratory distress [Unknown]
  - Thrombocytopenia [Unknown]
  - Respiratory failure [Unknown]
  - Hyperbilirubinaemia [Unknown]
  - Pancytopenia [Unknown]
  - Anaemia [Unknown]
  - Therapy non-responder [Unknown]
  - Malignant neoplasm progression [Unknown]
  - Lymphadenopathy [Not Recovered/Not Resolved]
  - Neutropenia [Not Recovered/Not Resolved]
  - Langerhans^ cell histiocytosis [Unknown]
  - Drug resistance [Unknown]
  - Hepatosplenomegaly [Unknown]
  - Splenomegaly [Not Recovered/Not Resolved]
  - Condition aggravated [Not Recovered/Not Resolved]

NARRATIVE: CASE EVENT DATE: 201805
